FAERS Safety Report 21995380 (Version 1)
Quarter: 2023Q1

REPORT INFORMATION
  Report Type: Spontaneous
  Country: US (occurrence: None)
  Receive Date: 20230214
  Receipt Date: 20230214
  Transmission Date: 20230418
  Serious: No
  Sender: FDA-Public Use
  Company Number: None

PATIENT
  Age: 52 Year
  Sex: Female
  Weight: 63.45 kg

DRUGS (21)
  1. SUNOSI [Suspect]
     Active Substance: SOLRIAMFETOL
     Indication: Somnolence
     Dosage: OTHER QUANTITY : 1 TABLET(S)?
     Route: 048
     Dates: start: 20220331, end: 20220402
  2. LYUMJEV [Concomitant]
  3. TOUJEO [Concomitant]
     Active Substance: INSULIN GLARGINE
  4. METHLPHENIDATE [Concomitant]
  5. KLONOPIN [Concomitant]
     Active Substance: CLONAZEPAM
  6. PAROXETINE [Concomitant]
     Active Substance: PAROXETINE
  7. LAMOTIGINE [Concomitant]
  8. BUPROPION [Concomitant]
     Active Substance: BUPROPION
  9. ARMODAFINIL [Concomitant]
     Active Substance: ARMODAFINIL
  10. LEVOTHYROXINE [Concomitant]
     Active Substance: LEVOTHYROXINE
  11. CYCLOBENZAPRINE [Concomitant]
     Active Substance: CYCLOBENZAPRINE
  12. EZETIMIBE [Concomitant]
     Active Substance: EZETIMIBE
  13. ONDANSETRON [Concomitant]
     Active Substance: ONDANSETRON
  14. CLARITIN  FILNSTONES [Concomitant]
  15. FILNSTONES [Concomitant]
  16. PEPTO-BISMOL [Concomitant]
     Active Substance: BISMUTH SUBSALICYLATE
  17. ADVIL [Concomitant]
     Active Substance: IBUPROFEN
  18. TYLENOL [Concomitant]
     Active Substance: ACETAMINOPHEN
  19. GAX-S [Concomitant]
  20. IMODIUM [Concomitant]
     Active Substance: LOPERAMIDE HYDROCHLORIDE
  21. BEANO [Concomitant]
     Active Substance: ASPERGILLUS NIGER .ALPHA.-GALACTOSIDASE

REACTIONS (7)
  - Headache [None]
  - Dizziness [None]
  - Gait inability [None]
  - Blood pressure increased [None]
  - Feeling abnormal [None]
  - Panic disorder [None]
  - Impaired work ability [None]

NARRATIVE: CASE EVENT DATE: 20220403
